FAERS Safety Report 7035228-8 (Version None)
Quarter: 2010Q4

REPORT INFORMATION
  Report Type: 
  Country: None (occurrence: None)
  Receive Date: 20101007
  Receipt Date: 20101007
  Transmission Date: 20110411
  Serious: Yes (Life-Threatening, Hospitalization)
  Sender: FDA-Public Use
  Company Number: None

PATIENT
  Age: 19 Year
  Sex: Female
  Weight: 49.8957 kg

DRUGS (2)
  1. YAZ [Suspect]
     Indication: MENSTRUAL CYCLE MANAGEMENT
     Dosage: 3MG 1 DAILY PO
     Route: 048
     Dates: start: 20090408, end: 20090802
  2. YASMIN [Suspect]
     Indication: MENSTRUAL CYCLE MANAGEMENT
     Dosage: 1 DAILY PO
     Route: 048
     Dates: start: 20080512, end: 20090314

REACTIONS (3)
  - CHOLELITHIASIS [None]
  - JAUNDICE [None]
  - PANCREATITIS [None]
